FAERS Safety Report 5325149-0 (Version None)
Quarter: 2007Q2

REPORT INFORMATION
  Report Type: 
  Country: None (occurrence: None)
  Receive Date: 20070515
  Receipt Date: 20070507
  Transmission Date: 20071010
  Serious: Yes (Other)
  Sender: FDA-Public Use
  Company Number: US-AVENTIS-200714005GDDC

PATIENT
  Age: 78 Year
  Sex: Male
  Weight: 103.8 kg

DRUGS (8)
  1. TAXOTERE [Suspect]
     Indication: PROSTATE CANCER
     Route: 042
     Dates: start: 20070416, end: 20070416
  2. RADIATION THERAPY [Suspect]
     Indication: PROSTATE CANCER
     Dosage: DOSE: UNK
  3. FELODIPINE [Concomitant]
     Dosage: DOSE: UNK
  4. VYTORIN [Concomitant]
     Dosage: DOSE: UNK
  5. GLUCOSAMINE [Concomitant]
     Dosage: DOSE: UNK
  6. MULTI-VITAMINS [Concomitant]
     Dosage: DOSE: UNK
  7. ASPIRIN [Concomitant]
     Dosage: DOSE: UNK
  8. DEXAMETHASONE 0.5MG TAB [Concomitant]
     Dosage: DOSE: 8 MG THE EVENING BEFORE, THE DAY OF AND THE DAY AFTER CHEMO TREATMENT
     Route: 048

REACTIONS (2)
  - HYPERGLYCAEMIA [None]
  - LYMPHOPENIA [None]
